FAERS Safety Report 7080064-X (Version None)
Quarter: 2010Q4

REPORT INFORMATION
  Report Type: 
  Country: None (occurrence: None)
  Receive Date: 20101102
  Receipt Date: 20101018
  Transmission Date: 20110411
  Serious: No
  Sender: FDA-Public Use
  Company Number: US-ABBOTT-10P-163-0680002-00

PATIENT
  Sex: Female

DRUGS (1)
  1. BIAXIN [Suspect]
     Indication: BRONCHITIS

REACTIONS (3)
  - ERYTHEMA [None]
  - RASH MACULO-PAPULAR [None]
  - SKIN WARM [None]
